FAERS Safety Report 14260578 (Version 2)
Quarter: 2017Q4

REPORT INFORMATION
  Report Type: Spontaneous
  Country: CH (occurrence: CH)
  Receive Date: 20171207
  Receipt Date: 20171220
  Transmission Date: 20180321
  Serious: Yes (Other)
  Sender: FDA-Public Use
  Company Number: PHHY2017CH154221

PATIENT
  Sex: Female

DRUGS (4)
  1. COSENTYX [Suspect]
     Active Substance: SECUKINUMAB
     Indication: PSORIATIC ARTHROPATHY
     Dosage: 300 MG, QW
     Route: 065
     Dates: start: 20171003, end: 20171022
  2. TORASEMIDE [Concomitant]
     Active Substance: TORSEMIDE
     Indication: OEDEMA
     Dosage: 10 MG, UNK
     Route: 048
     Dates: start: 2016
  3. DIOVAN [Concomitant]
     Active Substance: VALSARTAN
     Indication: HYPERTENSION
     Dosage: 80 MG, UNK
     Route: 048
  4. SPIRICORT [Concomitant]
     Active Substance: PREDNISOLONE
     Indication: ARTHRITIS
     Dosage: 5 TO 10 MG, UNK
     Route: 048

REACTIONS (10)
  - Dizziness [Unknown]
  - Swollen tongue [Unknown]
  - Flushing [Unknown]
  - Headache [Unknown]
  - Dysgeusia [Unknown]
  - Nausea [Unknown]
  - Paraesthesia mucosal [Unknown]
  - Pruritus generalised [Unknown]
  - Hypersensitivity [Unknown]
  - Paraesthesia oral [Unknown]

NARRATIVE: CASE EVENT DATE: 20171003
